FAERS Safety Report 20947762 (Version 1)
Quarter: 2022Q2

REPORT INFORMATION
  Report Type: Spontaneous
  Country: ES (occurrence: ES)
  Receive Date: 20220611
  Receipt Date: 20220611
  Transmission Date: 20220721
  Serious: Yes (Hospitalization)
  Sender: FDA-Public Use
  Company Number: None

PATIENT
  Age: 83 Year
  Sex: Male

DRUGS (2)
  1. LISINOPRIL [Interacting]
     Active Substance: LISINOPRIL
     Dosage: LISINOPRIL (2222A) , UNIT DOSE : 20 MG , FREQUENCY TIME : 24 HOURS
     Dates: start: 2021
  2. SULFAMETHOXAZOLE\TRIMETHOPRIM [Interacting]
     Active Substance: SULFAMETHOXAZOLE\TRIMETHOPRIM
     Dosage: STRENGTH : 160 MG/800 MG  , UNIT DOSE : 1 DF , FREQUENCY TIME : 8 HOURS , DURATION : 6 DAYS
     Route: 048
     Dates: start: 20220516, end: 20220521

REACTIONS (4)
  - Acute kidney injury [Recovering/Resolving]
  - Medication error [Recovering/Resolving]
  - Hyperkalaemia [Recovering/Resolving]
  - Drug interaction [Unknown]

NARRATIVE: CASE EVENT DATE: 20220521
